FAERS Safety Report 25750874 (Version 1)
Quarter: 2025Q3

REPORT INFORMATION
  Report Type: Spontaneous
  Country: US (occurrence: None)
  Receive Date: 20250829
  Receipt Date: 20250829
  Transmission Date: 20251020
  Serious: Yes (Death)
  Sender: FDA-CTU
  Company Number: None

PATIENT
  Age: 69 Year
  Sex: Female

DRUGS (2)
  1. AMBRISENTAN [Suspect]
     Active Substance: AMBRISENTAN
  2. AMBRISENTAN [Concomitant]
     Dosage: FREQUENCY : DAILY;?
     Route: 048
     Dates: start: 20161214

REACTIONS (4)
  - Fall [None]
  - Hip fracture [None]
  - Respiratory disorder [None]
  - Oxygen saturation abnormal [None]

NARRATIVE: CASE EVENT DATE: 20250726
